APPROVED DRUG PRODUCT: DEXTROSE 5% AND POTASSIUM CHLORIDE 0.224% IN PLASTIC CONTAINER
Active Ingredient: DEXTROSE; POTASSIUM CHLORIDE
Strength: 5GM/100ML;224MG/100ML
Dosage Form/Route: INJECTABLE;INJECTION
Application: N017634 | Product #003
Applicant: BAXTER HEALTHCARE CORP
Approved: Approved Prior to Jan 1, 1982 | RLD: Yes | RS: No | Type: RX